FAERS Safety Report 12591694 (Version 1)
Quarter: 2016Q3

REPORT INFORMATION
  Report Type: Report from Study
  Country: US (occurrence: US)
  Receive Date: 20160726
  Receipt Date: 20160726
  Transmission Date: 20161109
  Serious: Yes (Death, Hospitalization, Other)
  Sender: FDA-Public Use
  Company Number: US-ROCHE-1107824

PATIENT
  Age: 57 Year
  Sex: Female
  Weight: 61.4 kg

DRUGS (6)
  1. VISMODEGIB [Suspect]
     Active Substance: VISMODEGIB
     Dosage: COURSE 2
     Route: 048
     Dates: start: 20120525
  2. VISMODEGIB [Suspect]
     Active Substance: VISMODEGIB
     Indication: PANCREATIC CARCINOMA
     Dosage: LAST DOSE ADMINISTERED ON: 09/JUL/2012
     Route: 048
     Dates: start: 20120427
  3. GEMCITABINE [Suspect]
     Active Substance: GEMCITABINE\GEMCITABINE HYDROCHLORIDE
     Dosage: COURSE 2
     Route: 042
     Dates: start: 20120525
  4. GEMCITABINE [Suspect]
     Active Substance: GEMCITABINE\GEMCITABINE HYDROCHLORIDE
     Dosage: COURSE 3
     Route: 042
     Dates: start: 20120725, end: 20120814
  5. VISMODEGIB [Suspect]
     Active Substance: VISMODEGIB
     Dosage: COURSE 3
     Route: 048
     Dates: start: 20120725, end: 20120814
  6. GEMCITABINE [Suspect]
     Active Substance: GEMCITABINE\GEMCITABINE HYDROCHLORIDE
     Indication: PANCREATIC CARCINOMA
     Dosage: LAST DOSE ADMINISTERED ON: 25/JUN/2012
     Route: 042
     Dates: start: 20120427

REACTIONS (8)
  - Death [Fatal]
  - Alanine aminotransferase increased [Unknown]
  - Dyspnoea [Recovered/Resolved with Sequelae]
  - Hyperkalaemia [Not Recovered/Not Resolved]
  - Aspiration [Unknown]
  - Aspartate aminotransferase increased [Unknown]
  - Oedema peripheral [Not Recovered/Not Resolved]
  - Aspartate aminotransferase increased [Unknown]

NARRATIVE: CASE EVENT DATE: 20120705
